FAERS Safety Report 13603438 (Version 1)
Quarter: 2017Q2

REPORT INFORMATION
  Report Type: Spontaneous
  Country: US (occurrence: US)
  Receive Date: 20170601
  Receipt Date: 20170601
  Transmission Date: 20170912
  Serious: Yes (Hospitalization)
  Sender: FDA-Public Use
  Company Number: US-OTSUKA-2016_028357

PATIENT
  Sex: Male

DRUGS (2)
  1. SAMSCA [Suspect]
     Dosage: 15 MG, UNK
     Route: 065
     Dates: start: 201611, end: 201611
  2. SAMSCA [Suspect]
     Indication: PRODUCT USED FOR UNKNOWN INDICATION
     Dosage: 30 MG,UNK
     Route: 065
     Dates: start: 201611

REACTIONS (2)
  - Dehydration [Unknown]
  - Rapid correction of hyponatraemia [Unknown]

NARRATIVE: CASE EVENT DATE: 201611
